FAERS Safety Report 17398236 (Version 1)
Quarter: 2020Q1

REPORT INFORMATION
  Report Type: Spontaneous
  Country: BE (occurrence: BE)
  Receive Date: 20200210
  Receipt Date: 20200210
  Transmission Date: 20200409
  Serious: Yes (Hospitalization, Other)
  Sender: FDA-Public Use
  Company Number: BE-009507513-2002BEL001577

PATIENT
  Age: 45 Year
  Sex: Female

DRUGS (4)
  1. KEYTRUDA [Suspect]
     Active Substance: PEMBROLIZUMAB
     Indication: ADENOCARCINOMA
     Dosage: 200 MILLIGRAM
     Route: 042
     Dates: start: 20180130, end: 2019
  2. KEYTRUDA [Suspect]
     Active Substance: PEMBROLIZUMAB
     Dosage: 400 MILLIGRAM
     Route: 042
     Dates: start: 20191023, end: 2020
  3. MEDROL [Suspect]
     Active Substance: METHYLPREDNISOLONE
     Indication: COLITIS
     Dosage: 16 MILLIGRAM
     Dates: end: 2020
  4. MEDROL [Suspect]
     Active Substance: METHYLPREDNISOLONE
     Indication: DUODENITIS
     Dosage: 8 MILLIGRAM
     Dates: start: 2020

REACTIONS (3)
  - Pancreatitis [Not Recovered/Not Resolved]
  - Duodenitis [Unknown]
  - Colitis [Unknown]

NARRATIVE: CASE EVENT DATE: 20191201
